FAERS Safety Report 9437599 (Version 1)
Quarter: 2013Q3

REPORT INFORMATION
  Report Type: Spontaneous
  Country: US (occurrence: US)
  Receive Date: 20130802
  Receipt Date: 20130802
  Transmission Date: 20140515
  Serious: Yes (Other)
  Sender: FDA-Public Use
  Company Number: US-TEVA-422692USA

PATIENT
  Sex: Female
  Weight: 46.76 kg

DRUGS (1)
  1. QVAR [Suspect]
     Indication: ASTHMA
     Route: 055

REACTIONS (4)
  - Road traffic accident [Unknown]
  - Activities of daily living impaired [Not Recovered/Not Resolved]
  - Back pain [Unknown]
  - Headache [Unknown]
